FAERS Safety Report 21327271 (Version 1)
Quarter: 2022Q3

REPORT INFORMATION
  Report Type: Report from Study
  Country: US (occurrence: US)
  Receive Date: 20220913
  Receipt Date: 20220913
  Transmission Date: 20221027
  Serious: Yes (Hospitalization, Other)
  Sender: FDA-Public Use
  Company Number: US-JNJFOC-20220909948

PATIENT
  Age: 72 Year
  Sex: Male
  Weight: 51.484 kg

DRUGS (19)
  1. MACITENTAN [Suspect]
     Active Substance: MACITENTAN
     Indication: Product used for unknown indication
     Route: 048
     Dates: end: 202208
  2. TYVASO [Suspect]
     Active Substance: TREPROSTINIL
     Indication: Pulmonary arterial hypertension
     Dosage: 72 UG (12 BREATHS), FOUR TIMES A DAY (QID) VIA INHALATION (IH) ROUTE.
     Route: 048
     Dates: start: 20220510
  3. TYVASO [Suspect]
     Active Substance: TREPROSTINIL
     Route: 048
     Dates: start: 2022
  4. TYVASO [Suspect]
     Active Substance: TREPROSTINIL
     Route: 048
     Dates: start: 2022
  5. SILDENAFIL CITRATE [Concomitant]
     Active Substance: SILDENAFIL CITRATE
  6. ALBUTEROL [Concomitant]
     Active Substance: ALBUTEROL
  7. ALLOPURINOL [Concomitant]
     Active Substance: ALLOPURINOL
  8. AMLODIPINE [Concomitant]
     Active Substance: AMLODIPINE BESYLATE
  9. ASCORBIC ACID [Concomitant]
     Active Substance: ASCORBIC ACID
  10. ASPIRIN [Concomitant]
     Active Substance: ASPIRIN
  11. LIPITOR [Concomitant]
     Active Substance: ATORVASTATIN CALCIUM
  12. VITAMIN D3 [Concomitant]
     Active Substance: CHOLECALCIFEROL
  13. FOLIC ACID [Concomitant]
     Active Substance: FOLIC ACID
  14. LASIX [Concomitant]
     Active Substance: FUROSEMIDE
  15. LOSARTAN [Concomitant]
     Active Substance: LOSARTAN
  16. SYMBICORT [Concomitant]
     Active Substance: BUDESONIDE\FORMOTEROL FUMARATE DIHYDRATE
  17. DUONEB [Concomitant]
     Active Substance: ALBUTEROL SULFATE\IPRATROPIUM BROMIDE
  18. ALDACTONE [Concomitant]
     Active Substance: SPIRONOLACTONE
  19. ELIQUIS [Concomitant]
     Active Substance: APIXABAN

REACTIONS (5)
  - Acute respiratory failure [Unknown]
  - COVID-19 [Unknown]
  - Lung disorder [Unknown]
  - Hypercapnia [Unknown]
  - Hypoxia [Unknown]

NARRATIVE: CASE EVENT DATE: 20220718
